FAERS Safety Report 21125088 (Version 1)
Quarter: 2022Q3

REPORT INFORMATION
  Report Type: Spontaneous
  Country: US (occurrence: None)
  Receive Date: 20220725
  Receipt Date: 20220725
  Transmission Date: 20221026
  Serious: No
  Sender: FDA-Public Use
  Company Number: 2022A246620

PATIENT
  Age: 79 Year
  Sex: Male

DRUGS (6)
  1. NEXIUM [Suspect]
     Active Substance: ESOMEPRAZOLE MAGNESIUM
     Indication: Reflux gastritis
     Route: 048
     Dates: end: 2022
  2. NEXIUM [Suspect]
     Active Substance: ESOMEPRAZOLE MAGNESIUM
     Indication: Oesophagitis
     Route: 048
     Dates: end: 2022
  3. NEXIUM [Suspect]
     Active Substance: ESOMEPRAZOLE MAGNESIUM
     Indication: Reflux gastritis
     Dosage: 40.0MG AS REQUIRED
     Route: 048
     Dates: start: 2022, end: 2022
  4. NEXIUM [Suspect]
     Active Substance: ESOMEPRAZOLE MAGNESIUM
     Indication: Oesophagitis
     Dosage: 40.0MG AS REQUIRED
     Route: 048
     Dates: start: 2022, end: 2022
  5. NEXIUM 24HR [Suspect]
     Active Substance: ESOMEPRAZOLE MAGNESIUM
     Indication: Reflux gastritis
     Dosage: 40.0MG AS REQUIRED
     Route: 048
     Dates: start: 2022
  6. NEXIUM 24HR [Suspect]
     Active Substance: ESOMEPRAZOLE MAGNESIUM
     Indication: Oesophagitis
     Dosage: 40.0MG AS REQUIRED
     Route: 048
     Dates: start: 2022

REACTIONS (8)
  - Body height decreased [Not Recovered/Not Resolved]
  - Oesophageal disorder [Unknown]
  - Type 2 diabetes mellitus [Not Recovered/Not Resolved]
  - Hypertension [Not Recovered/Not Resolved]
  - Blood cholesterol increased [Not Recovered/Not Resolved]
  - Gastrooesophageal reflux disease [Not Recovered/Not Resolved]
  - Intentional product misuse [Recovered/Resolved]
  - Drug ineffective [Not Recovered/Not Resolved]

NARRATIVE: CASE EVENT DATE: 20220101
